FAERS Safety Report 16140174 (Version 1)
Quarter: 2019Q2

REPORT INFORMATION
  Report Type: Spontaneous
  Country: US (occurrence: US)
  Receive Date: 20190329
  Receipt Date: 20190329
  Transmission Date: 20190711
  Serious: No
  Sender: FDA-Public Use
  Company Number: None

PATIENT
  Age: 66 Year
  Sex: Female
  Weight: 87.3 kg

DRUGS (7)
  1. AMITRYPTILIN [Concomitant]
  2. VITAMIN C [Concomitant]
     Active Substance: ASCORBIC ACID
  3. VENLAFAXINE [Concomitant]
     Active Substance: VENLAFAXINE HYDROCHLORIDE
  4. CIGMADIL CLINDAMICINA  300 MG CAPSULES [Suspect]
     Active Substance: CLINDAMYCIN HYDROCHLORIDE
     Indication: TOOTH EXTRACTION
     Dosage: ?          QUANTITY:16 CAPSULE(S);?
     Route: 048
     Dates: start: 20190309, end: 20190316
  5. OMEPREZEL [Concomitant]
  6. ADVIL [Concomitant]
     Active Substance: IBUPROFEN
  7. VITAMIN D3 [Concomitant]
     Active Substance: CHOLECALCIFEROL

REACTIONS (3)
  - Skin disorder [None]
  - Gastrooesophageal reflux disease [None]
  - Rash pruritic [None]

NARRATIVE: CASE EVENT DATE: 20190313
